FAERS Safety Report 5546988-7 (Version None)
Quarter: 2007Q4

REPORT INFORMATION
  Report Type: 
  Country: None (occurrence: None)
  Receive Date: 20071211
  Receipt Date: 20071130
  Transmission Date: 20080405
  Serious: Yes (Other)
  Sender: FDA-Public Use
  Company Number: US-PFIZER INC-2007100745

PATIENT
  Sex: Female
  Weight: 68 kg

DRUGS (3)
  1. AROMASIN [Suspect]
     Indication: BREAST CANCER
     Route: 048
     Dates: start: 20070801, end: 20071119
  2. XALATAN [Concomitant]
  3. ALPHAGAN [Concomitant]

REACTIONS (7)
  - ARTHRALGIA [None]
  - DEPRESSION [None]
  - DIZZINESS [None]
  - FEELING ABNORMAL [None]
  - HEADACHE [None]
  - MYALGIA [None]
  - VISUAL ACUITY REDUCED [None]
